FAERS Safety Report 12845540 (Version 1)
Quarter: 2016Q4

REPORT INFORMATION
  Report Type: Spontaneous
  Country: US (occurrence: US)
  Receive Date: 20161013
  Receipt Date: 20161013
  Transmission Date: 20170207
  Serious: No
  Sender: FDA-Public Use
  Company Number: US-JAZZ-2016-US-013817

PATIENT
  Sex: Male

DRUGS (36)
  1. XYREM [Suspect]
     Active Substance: SODIUM OXYBATE
     Indication: PAIN
     Dosage: 3 G, BID
     Route: 048
     Dates: start: 201010, end: 2010
  2. VIIBRYD [Concomitant]
     Active Substance: VILAZODONE HYDROCHLORIDE
  3. OXYCODONE HYDROCHLORIDE. [Concomitant]
     Active Substance: OXYCODONE HYDROCHLORIDE
  4. HYDROMORPHONE [Concomitant]
     Active Substance: HYDROMORPHONE
  5. CYMBALTA [Concomitant]
     Active Substance: DULOXETINE HYDROCHLORIDE
  6. DOCUSATE CALCIUM. [Concomitant]
     Active Substance: DOCUSATE CALCIUM
  7. AMBIEN [Concomitant]
     Active Substance: ZOLPIDEM TARTRATE
  8. MS CONTIN [Concomitant]
     Active Substance: MORPHINE SULFATE
  9. BACLOFEN. [Concomitant]
     Active Substance: BACLOFEN
  10. FENTANYL. [Concomitant]
     Active Substance: FENTANYL
  11. XYREM [Suspect]
     Active Substance: SODIUM OXYBATE
     Dosage: 4 G, SECOND DOSE
     Route: 048
     Dates: start: 201407
  12. MELATONIN [Concomitant]
     Active Substance: MELATONIN
  13. IBUPROFEN IB [Concomitant]
     Active Substance: IBUPROFEN
  14. TESTOSTERONE. [Concomitant]
     Active Substance: TESTOSTERONE
  15. ZINC [Concomitant]
     Active Substance: ZINC\ZINC CHLORIDE
  16. N-ACETYL-L-CYSTEINE [Concomitant]
     Active Substance: ACETYLCYSTEINE
  17. XYREM [Suspect]
     Active Substance: SODIUM OXYBATE
     Dosage: DOSE ADJUSTMENTS
     Route: 048
     Dates: start: 201012, end: 201407
  18. FISH OIL [Concomitant]
     Active Substance: FISH OIL
  19. SENNOSIDE [Concomitant]
     Active Substance: SENNOSIDES
  20. MORPHINE SULF CR [Concomitant]
  21. PROPRANOLOL ER [Concomitant]
  22. CELEBREX [Concomitant]
     Active Substance: CELECOXIB
  23. CLINDAMYCIN HCL [Concomitant]
     Active Substance: CLINDAMYCIN HYDROCHLORIDE
  24. TRILEPTAL [Concomitant]
     Active Substance: OXCARBAZEPINE
  25. TOPIRAMATE. [Concomitant]
     Active Substance: TOPIRAMATE
  26. MIRTAZAPINE. [Concomitant]
     Active Substance: MIRTAZAPINE
  27. ZANAFLEX [Concomitant]
     Active Substance: TIZANIDINE HYDROCHLORIDE
  28. XYREM [Suspect]
     Active Substance: SODIUM OXYBATE
     Dosage: 5 G, FIRST DOSE
     Route: 048
     Dates: start: 201407
  29. PROBIOTIC [Concomitant]
     Active Substance: PROBIOTICS NOS
  30. DHEA [Concomitant]
     Active Substance: PRASTERONE
  31. VALIUM [Concomitant]
     Active Substance: DIAZEPAM
  32. MULTIVITAMINS WITH IRON [Concomitant]
     Active Substance: IRON\VITAMINS
  33. OMEPRAZOLE DR [Concomitant]
     Active Substance: OMEPRAZOLE
  34. VITAMIN D [Concomitant]
     Active Substance: CHOLECALCIFEROL
  35. DIAZEPAM. [Concomitant]
     Active Substance: DIAZEPAM
  36. NORTRIPTYLINE HCL [Concomitant]
     Active Substance: NORTRIPTYLINE HYDROCHLORIDE

REACTIONS (1)
  - Memory impairment [Not Recovered/Not Resolved]
